FAERS Safety Report 7357021-9 (Version None)
Quarter: 2011Q1

REPORT INFORMATION
  Report Type: 
  Country: None (occurrence: None)
  Receive Date: 20110310
  Receipt Date: 20110310
  Transmission Date: 20110831
  Serious: No
  Sender: FDA-Public Use
  Company Number: None

PATIENT
  Age: 59 Year
  Sex: Male
  Weight: 156 kg

DRUGS (1)
  1. REGADENOSON [Suspect]
     Indication: CARDIAC STRESS TEST
     Dosage: 0.4 MG ONCE IV
     Route: 042
     Dates: start: 20110210, end: 20110210

REACTIONS (5)
  - URTICARIA [None]
  - PRURITUS [None]
  - DYSPNOEA [None]
  - PSORIASIS [None]
  - RASH [None]
